FAERS Safety Report 8304341-7 (Version None)
Quarter: 2012Q2

REPORT INFORMATION
  Report Type: 
  Country: None (occurrence: None)
  Receive Date: 20120423
  Receipt Date: 20120410
  Transmission Date: 20120825
  Serious: Yes (Hospitalization, Other)
  Sender: FDA-Public Use
  Company Number: GB-JNJFOC-20090708108

PATIENT
  Age: 32 Year
  Sex: Female

DRUGS (7)
  1. ACETAMINOPHEN [Suspect]
     Indication: ANIMAL SCRATCH
     Dosage: 2-4 G, DAILY DOSE, ^SEVERAL WKS^
     Route: 048
     Dates: start: 19981201, end: 19990115
  2. RIFAMPICIN [Interacting]
     Indication: PYREXIA
     Dosage: 600MG,2/1 DAY(DAILY DOSE)
     Route: 065
  3. DOXYCYCLINE [Concomitant]
     Indication: ILL-DEFINED DISORDER
     Route: 065
     Dates: start: 19981215, end: 19981230
  4. CLARITHROMYCIN [Concomitant]
     Indication: ILL-DEFINED DISORDER
     Route: 065
  5. RIFAMPICIN [Interacting]
     Indication: ANIMAL SCRATCH
     Dosage: 600MG,2/1 DAY(DAILY DOSE)
     Route: 065
  6. ACETAMINOPHEN [Suspect]
     Indication: PYREXIA
     Dosage: 2-4 G, DAILY DOSE, ^SEVERAL WKS^
     Route: 048
     Dates: start: 19981201, end: 19990115
  7. ACETAMINOPHEN [Suspect]
     Indication: LYMPHADENOPATHY
     Dosage: 2-4 G, DAILY DOSE, ^SEVERAL WKS^
     Route: 048
     Dates: start: 19981201, end: 19990115

REACTIONS (10)
  - ENCEPHALOPATHY [None]
  - HYPERBILIRUBINAEMIA [None]
  - PSEUDOLYMPHOMA [None]
  - HEPATIC FAILURE [None]
  - DRUG INTERACTION [None]
  - PROTHROMBIN LEVEL INCREASED [None]
  - HODGKIN'S DISEASE [None]
  - ALANINE AMINOTRANSFERASE INCREASED [None]
  - BLOOD ALKALINE PHOSPHATASE INCREASED [None]
  - CONFUSIONAL STATE [None]
